FAERS Safety Report 4331298-6 (Version None)
Quarter: 2004Q1

REPORT INFORMATION
  Report Type: 
  Country: None (occurrence: None)
  Receive Date: 20040331
  Receipt Date: 20040315
  Transmission Date: 20041129
  Serious: Yes (Other)
  Sender: FDA-Public Use
  Company Number: EWC040238075

PATIENT
  Age: 46 Year
  Sex: Male
  Weight: 90 kg

DRUGS (7)
  1. PEMETREXED [Suspect]
     Indication: NON-SMALL CELL LUNG CANCER
     Dosage: 1000 MG/1 OTHER
     Route: 050
     Dates: start: 20031216
  2. CARBOPLATIN [Suspect]
     Indication: NON-SMALL CELL LUNG CANCER
     Dosage: 900 MG/1 OTHER
     Route: 050
     Dates: start: 20031216
  3. FUROSEMIDE [Concomitant]
  4. EPREX [Concomitant]
  5. ALDACTONE [Concomitant]
  6. OPTOVITE B12(CYANOCOBALAMIN) [Concomitant]
  7. ROCHEVIT [Concomitant]

REACTIONS (3)
  - CONJUNCTIVITIS [None]
  - NECROSIS [None]
  - RETINAL DETACHMENT [None]
